FAERS Safety Report 4845361-4 (Version None)
Quarter: 2005Q4

REPORT INFORMATION
  Report Type: 
  Country: None (occurrence: None)
  Receive Date: 20051205
  Receipt Date: 20051026
  Transmission Date: 20060501
  Serious: Yes (Hospitalization)
  Sender: FDA-Public Use
  Company Number: DE-GLAXOSMITHKLINE-D0047826A

PATIENT
  Age: 63 Year
  Sex: Female

DRUGS (3)
  1. ELOBACT [Suspect]
     Route: 065
  2. AMLODIPINE [Concomitant]
     Route: 065
  3. THYRONAJOD [Concomitant]
     Indication: THYROID DISORDER
     Route: 048

REACTIONS (4)
  - DERMATITIS CONTACT [None]
  - DRUG HYPERSENSITIVITY [None]
  - ERYTHEMA [None]
  - SKIN DISORDER [None]
